FAERS Safety Report 18715088 (Version 3)
Quarter: 2021Q1

REPORT INFORMATION
  Report Type: Spontaneous
  Country: CA (occurrence: CA)
  Receive Date: 20210107
  Receipt Date: 20210117
  Transmission Date: 20210419
  Serious: No
  Sender: FDA-Public Use
  Company Number: CA-CELLTRION INC.-2020CA034916

PATIENT

DRUGS (7)
  1. INFLECTRA [Suspect]
     Active Substance: INFLIXIMAB-DYYB
     Dosage: 400 MG Q 8 WEEKS
     Route: 042
     Dates: start: 20210104
  2. PREDNISONE. [Concomitant]
     Active Substance: PREDNISONE
     Dosage: 40 MG (TAPER)
  3. MEZAVANT [Concomitant]
     Active Substance: MESALAMINE
     Dosage: 2.4 G
  4. PREDNISONE. [Concomitant]
     Active Substance: PREDNISONE
     Dosage: 6 PILLS
  5. INFLECTRA [Suspect]
     Active Substance: INFLIXIMAB-DYYB
     Dosage: 400 MG Q 8 WEEKS
     Route: 042
     Dates: start: 20210106
  6. INFLECTRA [Suspect]
     Active Substance: INFLIXIMAB-DYYB
     Indication: COLITIS ULCERATIVE
     Dosage: 400 MG Q 8 WEEKS
     Route: 042
     Dates: start: 20201218
  7. PREDNISONE. [Concomitant]
     Active Substance: PREDNISONE
     Dosage: 6 PILLS

REACTIONS (4)
  - Tongue erythema [Unknown]
  - Off label use [Unknown]
  - Rash papular [Not Recovered/Not Resolved]
  - Rash macular [Unknown]

NARRATIVE: CASE EVENT DATE: 202012
